FAERS Safety Report 21251798 (Version 9)
Quarter: 2023Q4

REPORT INFORMATION
  Report Type: Report from Study
  Country: CA (occurrence: CA)
  Receive Date: 20220825
  Receipt Date: 20231019
  Transmission Date: 20240109
  Serious: Yes (Hospitalization, Other)
  Sender: FDA-Public Use
  Company Number: CA-JNJFOC-20220720655

PATIENT
  Age: 60 Year
  Sex: Male
  Weight: 89 kg

DRUGS (2)
  1. REMICADE [Suspect]
     Active Substance: INFLIXIMAB
     Indication: Colitis ulcerative
     Dosage: EXPIRATION DATE: 30-JUN-2025, 28-FEB-2025
     Route: 042
     Dates: start: 20150504
  2. REMICADE [Suspect]
     Active Substance: INFLIXIMAB
     Dosage: V8: EXPIRY DATE: 30-NOV-2025
     Route: 042
     Dates: start: 20150504

REACTIONS (6)
  - Prostate cancer [Not Recovered/Not Resolved]
  - Crohn^s disease [Unknown]
  - Myocardial infarction [Unknown]
  - Dysuria [Unknown]
  - Knee arthroplasty [Recovered/Resolved]
  - Off label use [Unknown]

NARRATIVE: CASE EVENT DATE: 20150504
